FAERS Safety Report 12136441 (Version 2)
Quarter: 2016Q2

REPORT INFORMATION
  Report Type: Spontaneous
  Country: US (occurrence: US)
  Receive Date: 20160302
  Receipt Date: 20160421
  Transmission Date: 20160815
  Serious: No
  Sender: FDA-Public Use
  Company Number: US-PFIZER INC-2016097746

PATIENT
  Age: 77 Year
  Sex: Female
  Weight: 64 kg

DRUGS (4)
  1. LEVOTHYROXINE SODIUM. [Suspect]
     Active Substance: LEVOTHYROXINE SODIUM
     Indication: HYPOTHYROIDISM
     Dosage: 2.65 MG, WEEKLY, 0.5 MG FOR 5 DAYS, AND FOR 2 DAYS 0.075MG
     Route: 048
  2. ATORVASTATIN [Concomitant]
     Active Substance: ATORVASTATIN
     Indication: BLOOD CHOLESTEROL INCREASED
     Dosage: 5 MG, ALTERNATE DAY, 10MG TABLET, TAKE A HALF TABLET
  3. CLONAZEPAM. [Concomitant]
     Active Substance: CLONAZEPAM
     Indication: FIBROMYALGIA
     Dosage: 2 MG, 1X/DAY, 1 MG, 2 TABLETS NIGHTLY
  4. ESTROGEN [Concomitant]
     Active Substance: ESTRONE\SUS SCROFA OVARY
     Indication: OSTEOPENIA
     Dosage: 0.025 MG, UNK

REACTIONS (1)
  - Restlessness [Unknown]
